FAERS Safety Report 17243737 (Version 1)
Quarter: 2020Q1

REPORT INFORMATION
  Report Type: Spontaneous
  Country: US (occurrence: US)
  Receive Date: 20200107
  Receipt Date: 20200107
  Transmission Date: 20200409
  Serious: Yes (Death)
  Sender: FDA-Public Use
  Company Number: US-ROCHE-2292677

PATIENT
  Age: 88 Year
  Sex: Male
  Weight: 102.15 kg

DRUGS (2)
  1. ACTIVASE [Suspect]
     Active Substance: ALTEPLASE
     Indication: ISCHAEMIC STROKE
     Dosage: ONE TIME TREATMENT
     Route: 040
     Dates: start: 20190313, end: 20190313
  2. ACTIVASE [Suspect]
     Active Substance: ALTEPLASE
     Route: 042

REACTIONS (2)
  - Cerebral haemorrhage [Fatal]
  - Intraventricular haemorrhage [Fatal]

NARRATIVE: CASE EVENT DATE: 20190313
